FAERS Safety Report 15333266 (Version 2)
Quarter: 2018Q4

REPORT INFORMATION
  Report Type: Spontaneous
  Country: US (occurrence: US)
  Receive Date: 20180830
  Receipt Date: 20181004
  Transmission Date: 20190204
  Serious: No
  Sender: FDA-Public Use
  Company Number: US-CELGENEUS-USA-20180808845

PATIENT
  Age: 74 Year
  Sex: Male

DRUGS (2)
  1. OTEZLA [Suspect]
     Active Substance: APREMILAST
     Route: 048
     Dates: start: 20180815
  2. OTEZLA [Suspect]
     Active Substance: APREMILAST
     Indication: PSORIASIS
     Dosage: STARTER KIT
     Route: 048
     Dates: start: 20180813

REACTIONS (3)
  - Diarrhoea [Not Recovered/Not Resolved]
  - Faeces soft [Unknown]
  - Flatulence [Unknown]

NARRATIVE: CASE EVENT DATE: 20180813
